FAERS Safety Report 11128545 (Version 6)
Quarter: 2017Q4

REPORT INFORMATION
  Report Type: Report from Study
  Country: None (occurrence: BR)
  Receive Date: 20150521
  Receipt Date: 20171125
  Transmission Date: 20180320
  Serious: Yes (Other)
  Sender: FDA-Public Use
  Company Number: BR-ABBVIE-15K-020-1391368-00

PATIENT
  Age: 44 Year
  Sex: Female
  Weight: 53 kg

DRUGS (13)
  1. HUMIRA [Suspect]
     Active Substance: ADALIMUMAB
     Indication: RHEUMATOID ARTHRITIS
     Route: 058
     Dates: start: 20131104
  2. LOSARTAN. [Concomitant]
     Active Substance: LOSARTAN
     Indication: HYPERTENSION
     Route: 048
  3. HUMIRA [Suspect]
     Active Substance: ADALIMUMAB
     Route: 058
  4. PARACETAMOL [Concomitant]
     Active Substance: ACETAMINOPHEN
     Indication: PAIN
     Route: 048
  5. HUMIRA [Suspect]
     Active Substance: ADALIMUMAB
     Route: 058
  6. PREDNISONE. [Concomitant]
     Active Substance: PREDNISONE
     Route: 048
  7. TRAMAL [Concomitant]
     Active Substance: TRAMADOL
     Indication: PAIN
     Route: 048
  8. ATENOLOL. [Concomitant]
     Active Substance: ATENOLOL
     Indication: HYPERTENSION
     Route: 048
  9. PREDNISONE. [Concomitant]
     Active Substance: PREDNISONE
     Indication: RHEUMATIC DISORDER
     Route: 048
  10. SODIUM ALENDRONATE [Concomitant]
     Indication: BONE DISORDER
     Route: 048
     Dates: start: 2013
  11. METHOTREXATE. [Concomitant]
     Active Substance: METHOTREXATE
     Indication: RHEUMATIC DISORDER
     Route: 048
  12. HYDROCHLOROTHIAZIDE. [Concomitant]
     Active Substance: HYDROCHLOROTHIAZIDE
     Indication: HYPERTENSION
     Route: 048
  13. OMEPRAZOLE. [Concomitant]
     Active Substance: OMEPRAZOLE
     Indication: GASTRIC DISORDER
     Route: 048

REACTIONS (22)
  - Hypophagia [Not Recovered/Not Resolved]
  - Drug effect incomplete [Not Recovered/Not Resolved]
  - Aphasia [Not Recovered/Not Resolved]
  - Gingivitis [Recovering/Resolving]
  - Dysstasia [Not Recovered/Not Resolved]
  - Joint swelling [Recovering/Resolving]
  - Finger deformity [Recovering/Resolving]
  - Weight decreased [Not Recovered/Not Resolved]
  - Back pain [Not Recovered/Not Resolved]
  - Influenza [Recovered/Resolved]
  - Gingival disorder [Recovering/Resolving]
  - Hypophagia [Not Recovered/Not Resolved]
  - Arthritis [Recovering/Resolving]
  - Lumbar spinal stenosis [Unknown]
  - Cerebral disorder [Not Recovered/Not Resolved]
  - Decreased appetite [Not Recovered/Not Resolved]
  - Spinal osteoarthritis [Unknown]
  - Tooth loss [Recovering/Resolving]
  - Memory impairment [Not Recovered/Not Resolved]
  - Intervertebral disc protrusion [Not Recovered/Not Resolved]
  - Gait disturbance [Not Recovered/Not Resolved]
  - Malaise [Not Recovered/Not Resolved]

NARRATIVE: CASE EVENT DATE: 201412
